FAERS Safety Report 11647870 (Version 7)
Quarter: 2015Q4

REPORT INFORMATION
  Report Type: Spontaneous
  Country: US (occurrence: US)
  Receive Date: 20151021
  Receipt Date: 20151124
  Transmission Date: 20160304
  Serious: Yes (Other)
  Sender: FDA-Public Use
  Company Number: US-TEVA-602489USA

PATIENT
  Age: 42 Year
  Sex: Female
  Weight: 59.47 kg

DRUGS (7)
  1. TRAMADOL. [Concomitant]
     Active Substance: TRAMADOL
  2. CELEXA [Concomitant]
     Active Substance: CITALOPRAM HYDROBROMIDE
  3. KEPPRA [Concomitant]
     Active Substance: LEVETIRACETAM
  4. AMBIEN [Concomitant]
     Active Substance: ZOLPIDEM TARTRATE
  5. AMLODIPINE [Concomitant]
     Active Substance: AMLODIPINE BESYLATE
  6. ZECUITY [Suspect]
     Active Substance: SUMATRIPTAN SUCCINATE
     Indication: MIGRAINE
     Dosage: APPLY ONE PATCH AS NEEDED
     Route: 062
     Dates: start: 201510, end: 201510
  7. IRON [Concomitant]
     Active Substance: IRON

REACTIONS (10)
  - Application site erythema [Unknown]
  - Electric shock [Recovered/Resolved]
  - Pain [Recovered/Resolved]
  - Application site pain [Recovered/Resolved]
  - Drug ineffective [Unknown]
  - Thermal burn [Recovering/Resolving]
  - Scar [Recovering/Resolving]
  - Paraesthesia [Unknown]
  - Product quality issue [Unknown]
  - Device battery issue [Unknown]

NARRATIVE: CASE EVENT DATE: 201510
